FAERS Safety Report 15961821 (Version 4)
Quarter: 2019Q4

REPORT INFORMATION
  Report Type: Spontaneous
  Country: US (occurrence: US)
  Receive Date: 20190214
  Receipt Date: 20191024
  Transmission Date: 20200122
  Serious: Yes (Hospitalization, Other)
  Sender: FDA-Public Use
  Company Number: US-PFIZER INC-2018172469

PATIENT
  Age: 79 Year
  Sex: Female

DRUGS (6)
  1. CYMBALTA [Suspect]
     Active Substance: DULOXETINE HYDROCHLORIDE
     Indication: FACIAL PAIN
  2. LYRICA [Suspect]
     Active Substance: PREGABALIN
     Dosage: 150 MG, 3X/DAY (ONE CAPSULE 3 TIMES DAILY)
     Route: 048
  3. CYMBALTA [Suspect]
     Active Substance: DULOXETINE HYDROCHLORIDE
     Indication: TRIGEMINAL NEURALGIA
     Dosage: 60 MG, DAILY
     Route: 048
     Dates: start: 2013
  4. LYRICA [Suspect]
     Active Substance: PREGABALIN
     Indication: TRIGEMINAL NEURALGIA
     Dosage: 150 MG, 3X/DAY
     Route: 048
     Dates: start: 2013
  5. LYRICA [Suspect]
     Active Substance: PREGABALIN
     Indication: FACIAL PAIN
     Dosage: 150 MG, 3X/DAY
     Route: 048
     Dates: start: 20170921, end: 20190106
  6. LYRICA [Suspect]
     Active Substance: PREGABALIN
     Dosage: 150 MG, 3X/DAY
     Route: 048

REACTIONS (16)
  - Feeling hot [Unknown]
  - Muscular weakness [Recovered/Resolved]
  - Arrhythmia [Recovered/Resolved]
  - Psychiatric symptom [Recovered/Resolved]
  - Mental disorder [Unknown]
  - Syncope [Unknown]
  - Circulatory collapse [Unknown]
  - Feeling abnormal [Unknown]
  - Hypotension [Unknown]
  - Drug abuse [Unknown]
  - Confusional state [Unknown]
  - Dizziness [Unknown]
  - Drooling [Unknown]
  - Urinary tract infection [Unknown]
  - Loss of consciousness [Unknown]
  - Fall [Unknown]

NARRATIVE: CASE EVENT DATE: 201805
